FAERS Safety Report 8356025-7 (Version None)
Quarter: 2012Q2

REPORT INFORMATION
  Report Type: 
  Country: None (occurrence: None)
  Receive Date: 20120511
  Receipt Date: 20120511
  Transmission Date: 20120825
  Serious: Yes (Life-Threatening, Hospitalization, Disabling, Other)
  Sender: FDA-Public Use
  Company Number: None

PATIENT
  Age: 49 Year
  Sex: Female
  Weight: 70.3075 kg

DRUGS (1)
  1. ABILIFY [Suspect]
     Indication: DEPRESSION
     Dosage: 1 ONCE A DAY PO
     Route: 048
     Dates: start: 20110601, end: 20120410

REACTIONS (5)
  - HYPERTENSION [None]
  - DIABETES MELLITUS [None]
  - PANCREATITIS [None]
  - RENAL FAILURE [None]
  - DIALYSIS [None]
